FAERS Safety Report 4590018-0 (Version None)
Quarter: 2005Q1

REPORT INFORMATION
  Report Type: 
  Country: None (occurrence: None)
  Receive Date: 20050218
  Receipt Date: 20050218
  Transmission Date: 20050727
  Serious: Yes (Hospitalization)
  Sender: FDA-Public Use
  Company Number: None

PATIENT
  Sex: Male
  Weight: 61.6892 kg

DRUGS (15)
  1. CEFEPIME [Suspect]
     Indication: PNEUMONIA
     Dates: start: 20041007, end: 20041108
  2. ACETAMINOPHEN [Concomitant]
  3. ALBUTEROL/IPRATROPIUM [Concomitant]
  4. AMIODARONE [Concomitant]
  5. ASPIRIN [Concomitant]
  6. CITALOPRAM [Concomitant]
  7. DOCUSATE SODIUM SYRUP [Concomitant]
  8. INDOMETHACIN [Concomitant]
  9. MEGESTROL [Concomitant]
  10. METOPROLOL TARTRATE [Concomitant]
  11. NYSTATIN [Concomitant]
  12. PROMETHAZINE [Concomitant]
  13. POLYSTYRENE SULFONATE [Concomitant]
  14. TERAZOSIN HCL [Concomitant]
  15. TRAZODONE HCL [Concomitant]

REACTIONS (4)
  - EFFUSION [None]
  - EOSINOPHILIA [None]
  - PERICARDIAL DISEASE [None]
  - PLEURAL DISORDER [None]
